FAERS Safety Report 23267521 (Version 4)
Quarter: 2024Q1

REPORT INFORMATION
  Report Type: Report from Study
  Country: CA (occurrence: CA)
  Receive Date: 20231206
  Receipt Date: 20240305
  Transmission Date: 20240410
  Serious: Yes (Other)
  Sender: FDA-Public Use
  Company Number: CA-JNJFOC-20230600906

PATIENT
  Age: 21 Year
  Sex: Female
  Weight: 42 kg

DRUGS (4)
  1. REMICADE [Suspect]
     Active Substance: INFLIXIMAB
     Indication: Colitis ulcerative
     Route: 041
     Dates: start: 20190518
  2. REMICADE [Suspect]
     Active Substance: INFLIXIMAB
     Dosage: ON 30-MAY-2023, THE PATIENT COMPLETED HER PARTIAL MAYO AND RECEIVED HER 28TH INFUSION OF INFLIXIMAB
     Route: 041
  3. REMICADE [Suspect]
     Active Substance: INFLIXIMAB
     Route: 041
  4. REMICADE [Suspect]
     Active Substance: INFLIXIMAB
     Route: 041
     Dates: start: 20231229

REACTIONS (5)
  - Colitis ulcerative [Not Recovered/Not Resolved]
  - Fungal infection [Not Recovered/Not Resolved]
  - Drug ineffective [Unknown]
  - Wisdom teeth removal [Recovered/Resolved]
  - Off label use [Unknown]

NARRATIVE: CASE EVENT DATE: 20230401
